FAERS Safety Report 10979622 (Version 6)
Quarter: 2015Q3

REPORT INFORMATION
  Report Type: Spontaneous
  Country: NO (occurrence: NO)
  Receive Date: 20150402
  Receipt Date: 20150910
  Transmission Date: 20151125
  Serious: Yes (Death, Hospitalization, Other)
  Sender: FDA-Public Use
  Company Number: NO-ASTRAZENECA-2015SE28346

PATIENT
  Age: 45 Year
  Sex: Male
  Weight: 94 kg

DRUGS (22)
  1. YONDELIS [Suspect]
     Active Substance: TRABECTEDIN
     Indication: SARCOMA METASTATIC
     Dosage: 1.5MG/M, 2 MILLIGRAM(S)/SQ. METER, ONCE EVERY 3 WEEKS
     Route: 041
     Dates: end: 20150206
  2. ONDANSETRON [Concomitant]
     Active Substance: ONDANSETRON
     Indication: NAUSEA
     Dates: start: 20150115
  3. LAXOBERAL [Concomitant]
     Active Substance: SODIUM PICOSULFATE
     Indication: CONSTIPATION
     Dosage: 8 GTT DROP(S), DAILY
     Route: 048
     Dates: start: 20150115
  4. YONDELIS [Suspect]
     Active Substance: TRABECTEDIN
     Indication: SYNOVIAL SARCOMA
     Route: 042
     Dates: start: 20150115
  5. YONDELIS [Suspect]
     Active Substance: TRABECTEDIN
     Indication: SARCOMA METASTATIC
     Route: 042
     Dates: start: 20150115
  6. MEROPENEM. [Concomitant]
     Active Substance: MEROPENEM
     Indication: INFECTION
     Route: 040
     Dates: start: 20150218, end: 20150222
  7. OXYCONTIN [Concomitant]
     Active Substance: OXYCODONE HYDROCHLORIDE
     Indication: PAIN
     Route: 048
     Dates: start: 20150219, end: 20150222
  8. APREPITANT. [Suspect]
     Active Substance: APREPITANT
     Route: 065
  9. YONDELIS [Suspect]
     Active Substance: TRABECTEDIN
     Indication: SARCOMA METASTATIC
     Route: 042
     Dates: start: 20150205, end: 20150206
  10. YONDELIS [Suspect]
     Active Substance: TRABECTEDIN
     Indication: SYNOVIAL SARCOMA
     Dosage: 1.5MG/M, 2 MILLIGRAM(S)/SQ. METER, ONCE EVERY 3 WEEKS
     Route: 041
     Dates: end: 20150206
  11. DEXAMETHASONE. [Concomitant]
     Active Substance: DEXAMETHASONE
     Indication: PREMEDICATION
     Route: 048
     Dates: start: 20150115
  12. ESOMEPRAZOLE [Suspect]
     Active Substance: ESOMEPRAZOLE
     Route: 048
  13. APREPITANT. [Suspect]
     Active Substance: APREPITANT
     Route: 065
     Dates: start: 20150115
  14. APREPITANT. [Suspect]
     Active Substance: APREPITANT
     Route: 065
  15. ZITHROMAX [Concomitant]
     Active Substance: AZITHROMYCIN DIHYDRATE
     Indication: INFECTION
     Route: 048
     Dates: start: 20150218, end: 20150222
  16. DUPHALAC [Concomitant]
     Active Substance: LACTULOSE
     Indication: CONSTIPATION
     Route: 048
     Dates: start: 20150115
  17. YONDELIS [Suspect]
     Active Substance: TRABECTEDIN
     Indication: SYNOVIAL SARCOMA
     Route: 042
     Dates: start: 20150205, end: 20150206
  18. DEXAMETHASONE. [Concomitant]
     Active Substance: DEXAMETHASONE
     Indication: PREMEDICATION
     Route: 042
  19. LAXOBERAL [Concomitant]
     Active Substance: SODIUM PICOSULFATE
     Indication: CONSTIPATION
     Route: 048
  20. NEULASTA [Concomitant]
     Active Substance: PEGFILGRASTIM
     Indication: NEUTROPENIA
     Route: 058
     Dates: start: 20150115
  21. AFIPRAN [Concomitant]
     Indication: NAUSEA
     Dates: start: 20150115
  22. FURIX [Concomitant]
     Active Substance: FUROSEMIDE
     Indication: ACUTE KIDNEY INJURY
     Dates: start: 20150213, end: 20150222

REACTIONS (8)
  - Pulmonary congestion [Fatal]
  - Acute kidney injury [Fatal]
  - Cholecystitis [Fatal]
  - Rhabdomyolysis [Fatal]
  - Hepatic failure [Fatal]
  - Bone marrow failure [Fatal]
  - Lung infiltration [Fatal]
  - Transaminases increased [Fatal]

NARRATIVE: CASE EVENT DATE: 201502
